FAERS Safety Report 6847748-7 (Version None)
Quarter: 2010Q3

REPORT INFORMATION
  Report Type: 
  Country: None (occurrence: None)
  Receive Date: 20100714
  Receipt Date: 20100630
  Transmission Date: 20110219
  Serious: Yes (Other)
  Sender: FDA-Public Use
  Company Number: US-1181425

PATIENT
  Age: 36 Year
  Sex: Male
  Weight: 108.8633 kg

DRUGS (4)
  1. NEOMYCIN AND POLYMXIN B SULFATES AND HYDROCORTISONE [Suspect]
     Indication: TYMPANIC MEMBRANE PERFORATION
     Dosage: (3 GTT TID   AURICULAR (OTIC))
     Route: 001
     Dates: start: 20100326, end: 20100330
  2. AMOXICILLIN [Concomitant]
  3. BUPROPION [Concomitant]
  4. NICOTINE [Concomitant]

REACTIONS (3)
  - CONTRAINDICATION TO MEDICAL TREATMENT [None]
  - DRUG INEFFECTIVE [None]
  - HYPOACUSIS [None]
